FAERS Safety Report 13389825 (Version 1)
Quarter: 2017Q1

REPORT INFORMATION
  Report Type: Spontaneous
  Country: DE (occurrence: DE)
  Receive Date: 20170331
  Receipt Date: 20170331
  Transmission Date: 20170429
  Serious: Yes (Other)
  Sender: FDA-Public Use
  Company Number: DE-SUN PHARMACEUTICAL INDUSTRIES LTD-2017RR-137209

PATIENT
  Age: 61 Year
  Sex: Male

DRUGS (3)
  1. CISPLATIN. [Suspect]
     Active Substance: CISPLATIN
     Indication: TRANSITIONAL CELL CARCINOMA
     Dosage: 70 MG/M2, 6 CYCLES
     Route: 065
  2. GEMCITABINE [Suspect]
     Active Substance: GEMCITABINE\GEMCITABINE HYDROCHLORIDE
     Indication: TRANSITIONAL CELL CARCINOMA
     Dosage: 1250 MG/M2, 6 CYCLES
     Route: 065
     Dates: start: 20050726, end: 20051116
  3. GEFITINIB [Concomitant]
     Active Substance: GEFITINIB
     Indication: TRANSITIONAL CELL CARCINOMA
     Dosage: 250 MG, DAILY
     Route: 048

REACTIONS (5)
  - Rash [Unknown]
  - Dyspnoea [Unknown]
  - Leukopenia [Unknown]
  - Nausea [Unknown]
  - Discomfort [Unknown]
